FAERS Safety Report 9220482 (Version 2)
Quarter: 2013Q2

REPORT INFORMATION
  Report Type: Spontaneous
  Country: US (occurrence: US)
  Receive Date: 20130409
  Receipt Date: 20130416
  Transmission Date: 20140414
  Serious: Yes (Death)
  Sender: FDA-Public Use
  Company Number: US-ASTRAZENECA-2013SE22640

PATIENT
  Age: 215 Day
  Sex: Female

DRUGS (2)
  1. SYNAGIS [Suspect]
     Dosage: 100 MG/ML, 15 MG/KG ONCE PER MONTH
     Route: 030
     Dates: start: 20130128
  2. LASIX [Concomitant]

REACTIONS (2)
  - Death [Fatal]
  - Bronchiolitis [Unknown]
